FAERS Safety Report 7318493-9 (Version None)
Quarter: 2011Q1

REPORT INFORMATION
  Report Type: 
  Country: None (occurrence: None)
  Receive Date: 20110228
  Receipt Date: 20110215
  Transmission Date: 20110831
  Serious: No
  Sender: FDA-Public Use
  Company Number: US-PFIZER INC-2011007992

PATIENT
  Sex: Female

DRUGS (2)
  1. PRISTIQ [Suspect]
     Dosage: 50 MG, UNK
     Dates: start: 20100609, end: 20101123
  2. PRISTIQ [Suspect]
     Dosage: 100 MG, UNK
     Dates: start: 20101124

REACTIONS (1)
  - OEDEMA PERIPHERAL [None]
